FAERS Safety Report 11301808 (Version 1)
Quarter: 2015Q3

REPORT INFORMATION
  Report Type: Spontaneous
  Country: IE (occurrence: None)
  Receive Date: 20150722
  Receipt Date: 20150722
  Transmission Date: 20151125
  Serious: Yes (Hospitalization)
  Sender: FDA-Public Use
  Company Number: 2015HAR00008

PATIENT
  Age: 81 Year
  Sex: Female

DRUGS (1)
  1. TERBINAFINE (TERBINAFINE) UNKNOWN [Suspect]
     Active Substance: TERBINAFINE
     Indication: ONYCHOMYCOSIS
     Route: 048

REACTIONS (1)
  - Systemic lupus erythematosus [None]
